FAERS Safety Report 9925027 (Version 1)
Quarter: 2014Q1

REPORT INFORMATION
  Report Type: Spontaneous
  Country: US (occurrence: US)
  Receive Date: 20140226
  Receipt Date: 20140226
  Transmission Date: 20141002
  Serious: No
  Sender: FDA-Public Use
  Company Number: US-PFIZER INC-2014052047

PATIENT
  Age: 42 Year
  Sex: Male

DRUGS (3)
  1. XALKORI [Suspect]
     Indication: LUNG NEOPLASM
     Dosage: 250 MG, 2X/DAY
     Dates: start: 20130717
  2. BUPROPION [Interacting]
     Dosage: UNK
  3. SUBOXONE [Interacting]
     Dosage: UNK

REACTIONS (5)
  - Drug interaction [Unknown]
  - Constipation [Unknown]
  - Confusional state [Unknown]
  - Nausea [Unknown]
  - Vomiting [Unknown]
